FAERS Safety Report 22794358 (Version 3)
Quarter: 2024Q3

REPORT INFORMATION
  Report Type: Report from Study
  Country: US (occurrence: US)
  Receive Date: 20230807
  Receipt Date: 20240722
  Transmission Date: 20241017
  Serious: Yes (Other)
  Sender: MYLAN
  Company Number: US-MYLANLABS-2023M1082425

PATIENT
  Sex: Female
  Weight: 113.4 kg

DRUGS (2)
  1. GLATIRAMER ACETATE [Suspect]
     Active Substance: GLATIRAMER ACETATE
     Indication: Multiple sclerosis
     Dosage: 40 MILLIGRAM, 3XW
     Route: 058
  2. GLATIRAMER ACETATE [Suspect]
     Active Substance: GLATIRAMER ACETATE
     Indication: Relapsing-remitting multiple sclerosis

REACTIONS (6)
  - Multiple sclerosis [Unknown]
  - Foreign body sensation in eyes [Unknown]
  - Anxiety [Unknown]
  - Lack of injection site rotation [Unknown]
  - Needle issue [Unknown]
  - Product leakage [Unknown]
